FAERS Safety Report 17636459 (Version 2)
Quarter: 2020Q2

REPORT INFORMATION
  Report Type: Spontaneous
  Country: DE (occurrence: DE)
  Receive Date: 20200407
  Receipt Date: 20200504
  Transmission Date: 20200713
  Serious: Yes (Life-Threatening, Hospitalization, Other)
  Sender: FDA-Public Use
  Company Number: DE-TEVA-2020-DE-1220311

PATIENT
  Age: 51 Year
  Sex: Female

DRUGS (3)
  1. BRIVUDIN [Suspect]
     Active Substance: BRIVUDINE
     Indication: HERPES ZOSTER
     Dosage: 1 X 125 MG/D FOR 7 DAYS
     Route: 048
     Dates: start: 20200210, end: 20200217
  2. 5-FU [Suspect]
     Active Substance: FLUOROURACIL
     Indication: BREAST CANCER
     Dosage: 2600 MG/M?
     Route: 042
     Dates: start: 20200224
  3. TRAZODON 100 MG [Concomitant]
     Active Substance: TRAZODONE HYDROCHLORIDE
     Indication: DEPRESSION
     Dosage: 0,5 , 50 MG
     Route: 048

REACTIONS (6)
  - Febrile neutropenia [Unknown]
  - Haematotoxicity [Unknown]
  - Mucosal inflammation [Recovering/Resolving]
  - Pancytopenia [Recovering/Resolving]
  - Drug interaction [Unknown]
  - Alopecia [Unknown]

NARRATIVE: CASE EVENT DATE: 20200309
